FAERS Safety Report 24804488 (Version 1)
Quarter: 2025Q1

REPORT INFORMATION
  Report Type: Spontaneous
  Country: US (occurrence: None)
  Receive Date: 20250102
  Receipt Date: 20250102
  Transmission Date: 20250408
  Serious: Yes (Hospitalization, Other)
  Sender: FDA-CTU
  Company Number: None

PATIENT
  Age: 38 Year
  Sex: Female
  Weight: 111.15 kg

DRUGS (4)
  1. SEMAGLUTIDE [Suspect]
     Active Substance: SEMAGLUTIDE
     Indication: Weight decreased
     Route: 050
     Dates: start: 20241123, end: 20241228
  2. HYDROCODONE [Concomitant]
     Active Substance: HYDROCODONE
  3. Protonox [Concomitant]
  4. REGLAN [Concomitant]
     Active Substance: METOCLOPRAMIDE HYDROCHLORIDE

REACTIONS (3)
  - Cholecystectomy [None]
  - Ileus paralytic [None]
  - Procedural pain [None]

NARRATIVE: CASE EVENT DATE: 20241230
